FAERS Safety Report 24572712 (Version 1)
Quarter: 2024Q4

REPORT INFORMATION
  Report Type: Spontaneous
  Country: US (occurrence: US)
  Receive Date: 20241101
  Receipt Date: 20241101
  Transmission Date: 20250114
  Serious: No
  Sender: Tarsus Pharmaceuticals
  Company Number: US-TARSUS PHARMACEUTICALS-TSP-US-2024-000443

PATIENT
  Age: 85 Year
  Sex: Female

DRUGS (1)
  1. XDEMVY [Suspect]
     Active Substance: LOTILANER
     Indication: Demodex blepharitis
     Dosage: ONE DROP IN EACH EYE TWICE A DAY.
     Route: 047
     Dates: start: 20240904, end: 20240905

REACTIONS (3)
  - Hypersensitivity [Unknown]
  - Swelling of eyelid [Unknown]
  - Prescription drug used without a prescription [Unknown]
